FAERS Safety Report 6842243-3 (Version None)
Quarter: 2010Q3

REPORT INFORMATION
  Report Type: 
  Country: None (occurrence: None)
  Receive Date: 20100714
  Receipt Date: 20070724
  Transmission Date: 20110219
  Serious: No
  Sender: FDA-Public Use
  Company Number: US-PFIZER INC-2007062626

PATIENT
  Sex: Female
  Weight: 65.909 kg

DRUGS (3)
  1. CHANTIX [Suspect]
     Indication: SMOKING CESSATION THERAPY
     Dates: start: 20070601, end: 20070701
  2. ALLEGRA D 24 HOUR [Concomitant]
  3. SALBUTAMOL [Concomitant]

REACTIONS (1)
  - CONSTIPATION [None]
